FAERS Safety Report 6444832-7 (Version None)
Quarter: 2009Q4

REPORT INFORMATION
  Report Type: 
  Country: None (occurrence: None)
  Receive Date: 20091118
  Receipt Date: 20091106
  Transmission Date: 20100525
  Serious: Yes (Other)
  Sender: FDA-Public Use
  Company Number: PHHY2009JP35205

PATIENT
  Sex: Female
  Weight: 78 kg

DRUGS (19)
  1. DIOVAN T30230+TAB+HY [Suspect]
     Dosage: 20 MG, QD
     Route: 048
     Dates: start: 20080305, end: 20080314
  2. DIOVAN T30230+TAB+HY [Suspect]
     Dosage: 40 MG, QD
     Route: 048
     Dates: start: 20080314, end: 20080604
  3. DIOVAN T30230+TAB+HY [Suspect]
     Dosage: 80 MG, QD
     Route: 048
     Dates: start: 20080605, end: 20081003
  4. DIOVAN T30230+TAB+HY [Suspect]
     Dosage: 40 MG, QD
     Route: 048
     Dates: start: 20081003, end: 20081022
  5. DIOVAN T30230+TAB+HY [Suspect]
     Dosage: 80 MG, QD
     Route: 048
     Dates: start: 20081023
  6. ATELEC [Concomitant]
     Dosage: UNK
     Route: 048
     Dates: start: 20080605
  7. FLUITRAN [Concomitant]
     Dosage: 2 MG
     Route: 048
     Dates: start: 20080710
  8. FLUITRAN [Concomitant]
     Dosage: 1 MG
     Route: 048
  9. FLUITRAN [Concomitant]
     Dosage: 2 MG
     Route: 048
  10. KREMEZIN [Concomitant]
     Dosage: UNK
     Route: 048
     Dates: start: 20080310
  11. MEVALOTIN [Concomitant]
     Dosage: UNK
     Route: 048
     Dates: start: 20080310, end: 20080501
  12. NOVORAPID [Concomitant]
     Dosage: UNK
     Route: 058
     Dates: start: 20080301
  13. LEVEMIR [Concomitant]
     Dosage: UNK
     Route: 058
     Dates: start: 20080301
  14. DIART [Concomitant]
     Dosage: 30 MG
     Route: 048
     Dates: start: 20080301
  15. DIART [Concomitant]
     Dosage: 60 MG
     Route: 048
  16. LORELCO [Concomitant]
     Dosage: UNK
     Route: 048
     Dates: start: 20080501, end: 20090529
  17. GASMOTIN [Concomitant]
     Dosage: UNK
     Route: 048
     Dates: start: 20080626
  18. CRESTOR [Concomitant]
     Dosage: UNK
     Route: 048
     Dates: start: 20090807
  19. LASIX [Concomitant]
     Dosage: UNK
     Route: 048
     Dates: start: 20090226

REACTIONS (2)
  - BLOOD CREATININE INCREASED [None]
  - BLOOD UREA INCREASED [None]
